FAERS Safety Report 8542373-4 (Version None)
Quarter: 2012Q3

REPORT INFORMATION
  Report Type: 
  Country: None (occurrence: None)
  Receive Date: 20120726
  Receipt Date: 20110921
  Transmission Date: 20120928
  Serious: Yes (Hospitalization)
  Sender: FDA-Public Use
  Company Number: US-ASTRAZENECA-2011SE56781

PATIENT
  Age: 40 Year
  Sex: Male
  Weight: 99.8 kg

DRUGS (4)
  1. TOPROL-XL [Suspect]
     Indication: CARDIAC DISORDER
     Route: 048
  2. SEROQUEL [Suspect]
     Indication: BIPOLAR DISORDER
     Route: 048
  3. SEROQUEL [Suspect]
     Route: 048
  4. CLONIDINE [Concomitant]

REACTIONS (6)
  - ANGINA PECTORIS [None]
  - DRUG INEFFECTIVE FOR UNAPPROVED INDICATION [None]
  - RIGHT ATRIAL DILATATION [None]
  - OFF LABEL USE [None]
  - ARRHYTHMIA [None]
  - INSOMNIA [None]
